FAERS Safety Report 21975560 (Version 1)
Quarter: 2023Q1

REPORT INFORMATION
  Report Type: Spontaneous
  Country: IT (occurrence: IT)
  Receive Date: 20230210
  Receipt Date: 20230210
  Transmission Date: 20230418
  Serious: Yes (Hospitalization)
  Sender: FDA-Public Use
  Company Number: IT-MINISAL02-907483

PATIENT
  Age: 69 Year
  Sex: Male

DRUGS (5)
  1. MIRTAZAPINE [Suspect]
     Active Substance: MIRTAZAPINE
     Indication: Psychomotor hyperactivity
     Dosage: 1 DOSAGE FORM, ONCE A DAY (DA: UNITA POSOLOGICA FREQUENZA SOMMINISTRAZIONE: QUOTIDIANA)
     Route: 048
     Dates: start: 20220810, end: 20220811
  2. CLONAZEPAM [Suspect]
     Active Substance: CLONAZEPAM
     Indication: Generalised anxiety disorder
     Dosage: 1 DOSAGE FORM, ONCE A DAY (MISURA: UNITA POSOLOGICA FREQUENZA SOMMINISTRAZIONE: QUOTIDIANA)
     Route: 048
     Dates: start: 20220810, end: 20220811
  3. BENSERAZIDE HYDROCHLORIDE\LEVODOPA [Concomitant]
     Active Substance: BENSERAZIDE HYDROCHLORIDE\LEVODOPA
     Indication: Parkinson^s disease
     Dosage: 1 MILLIGRAM
     Route: 065
  4. PANTOPRAZOLE SODIUM [Concomitant]
     Active Substance: PANTOPRAZOLE SODIUM
     Indication: Dyspepsia
     Dosage: 1 DOSAGE FORM
     Route: 065
  5. SERTRALINE [Concomitant]
     Active Substance: SERTRALINE HYDROCHLORIDE
     Indication: Generalised anxiety disorder
     Dosage: 100 MILLIGRAM
     Route: 048

REACTIONS (1)
  - Sopor [Recovering/Resolving]

NARRATIVE: CASE EVENT DATE: 20220810
